FAERS Safety Report 5263573-5 (Version None)
Quarter: 2007Q1

REPORT INFORMATION
  Report Type: 
  Country: None (occurrence: None)
  Receive Date: 20070313
  Receipt Date: 20070228
  Transmission Date: 20070707
  Serious: Yes (Other)
  Sender: FDA-Public Use
  Company Number: PHBS2007JP03943

PATIENT
  Age: 30 Year
  Sex: Female

DRUGS (3)
  1. PARLODEL [Suspect]
  2. TERGURIDE [Concomitant]
  3. CABASER [Concomitant]

REACTIONS (3)
  - DRUG EXPOSURE DURING PREGNANCY [None]
  - FOETAL GROWTH RETARDATION [None]
  - GASTROINTESTINAL DISORDER [None]
